FAERS Safety Report 4874904-X (Version None)
Quarter: 2006Q1

REPORT INFORMATION
  Report Type: 
  Country: None (occurrence: None)
  Receive Date: 20060105
  Receipt Date: 20051221
  Transmission Date: 20060701
  Serious: Yes (Hospitalization)
  Sender: FDA-Public Use
  Company Number: 2005SP004519

PATIENT
  Age: 49 Year
  Sex: Female
  Weight: 86.1834 kg

DRUGS (9)
  1. XOPENEX [Suspect]
     Dosage: INHALATION
     Route: 055
     Dates: start: 20050601
  2. ALBUTEROL [Suspect]
     Indication: DYSPNOEA
  3. ADVAIR DISKUS 250/50 [Concomitant]
  4. ACCOLATE [Concomitant]
  5. TILADE [Concomitant]
  6. PREDNISOLONE [Concomitant]
  7. MIRAPEX [Concomitant]
  8. SINGULAIR [Concomitant]
  9. ATROVENT [Concomitant]

REACTIONS (3)
  - CHEST PAIN [None]
  - ELECTROCARDIOGRAM ST SEGMENT ELEVATION [None]
  - FIBRIN D DIMER INCREASED [None]
